FAERS Safety Report 25119604 (Version 1)
Quarter: 2025Q1

REPORT INFORMATION
  Report Type: Spontaneous
  Country: US (occurrence: None)
  Receive Date: 20250324
  Receipt Date: 20250324
  Transmission Date: 20250409
  Serious: No
  Sender: FDA-CTU
  Company Number: None

PATIENT
  Age: 89 Year
  Sex: Female
  Weight: 84.37 kg

DRUGS (2)
  1. SIMPONI [Suspect]
     Active Substance: GOLIMUMAB
     Indication: Rheumatoid arthritis
     Dosage: FREQUENCY : MONTHLY;?
     Route: 058
     Dates: start: 201910
  2. SIMPONI [Suspect]
     Active Substance: GOLIMUMAB
     Indication: Rheumatoid factor negative

REACTIONS (1)
  - Death [None]
